FAERS Safety Report 23091275 (Version 2)
Quarter: 2023Q4

REPORT INFORMATION
  Report Type: Report from Study
  Country: US (occurrence: US)
  Receive Date: 20231020
  Receipt Date: 20231117
  Transmission Date: 20240109
  Serious: Yes (Other)
  Sender: FDA-Public Use
  Company Number: US-PFIZER INC-PV202300171846

PATIENT
  Age: 48 Year
  Sex: Male

DRUGS (4)
  1. BRAFTOVI [Suspect]
     Active Substance: ENCORAFENIB
     Dosage: 450 MG, DAILY
  2. BRAFTOVI [Suspect]
     Active Substance: ENCORAFENIB
     Dosage: 300 MG, DAILY
  3. MEKTOVI [Suspect]
     Active Substance: BINIMETINIB
     Dosage: 3 DF, 2X/DAY
  4. MEKTOVI [Suspect]
     Active Substance: BINIMETINIB
     Dosage: 2 DF, 2X/DAY

REACTIONS (5)
  - Retinal oedema [Recovering/Resolving]
  - Vision blurred [Recovering/Resolving]
  - Visual impairment [Unknown]
  - Pruritus [Unknown]
  - Dry skin [Unknown]
